FAERS Safety Report 4457768-8 (Version None)
Quarter: 2004Q3

REPORT INFORMATION
  Report Type: 
  Country: None (occurrence: None)
  Receive Date: 20040922
  Receipt Date: 20040909
  Transmission Date: 20050211
  Serious: Yes (Other)
  Sender: FDA-Public Use
  Company Number: 2004065027

PATIENT
  Age: 68 Year
  Sex: 0
  Weight: 80 kg

DRUGS (4)
  1. DOXYCYCLINE [Suspect]
     Indication: MALARIA PROPHYLAXIS
     Dosage: 100 MG (100 MG, 1 IN 1 D), ORAL
     Route: 048
     Dates: start: 20040603, end: 20040806
  2. ASPIRIN [Concomitant]
  3. CAPTOPRIL [Concomitant]
  4. SILDENAFIL (SILDENAFIL) [Concomitant]

REACTIONS (1)
  - BLOOD PRESSURE INCREASED [None]
